FAERS Safety Report 23835362 (Version 1)
Quarter: 2024Q2

REPORT INFORMATION
  Report Type: Spontaneous
  Country: IT (occurrence: IT)
  Receive Date: 20240509
  Receipt Date: 20240509
  Transmission Date: 20240716
  Serious: Yes (Other)
  Sender: FDA-Public Use
  Company Number: IT-SUN PHARMACEUTICAL INDUSTRIES LTD-2024RR-445113

PATIENT
  Age: 72 Year
  Sex: Male
  Weight: 70 kg

DRUGS (8)
  1. TEMOZOLOMIDE [Suspect]
     Active Substance: TEMOZOLOMIDE
     Indication: Glioblastoma
     Dosage: 80 MILLIGRAM, DAILY
     Route: 065
     Dates: start: 20230927, end: 20231011
  2. PANTOPRAZOLE [Concomitant]
     Active Substance: PANTOPRAZOLE
     Indication: Product used for unknown indication
     Dosage: 40 MILLIGRAM, THE PATIENT TAKES PANTOPRAZOLE 40 MG, 1 TABLET/DAY
     Route: 048
  3. DEXAMETHASONE SODIUM PHOSPHATE [Concomitant]
     Active Substance: DEXAMETHASONE PHOSPHATE\DEXAMETHASONE SODIUM PHOSPHATE
     Indication: Product used for unknown indication
     Dosage: UNK
     Route: 065
  4. ZOLPIDEM TARTRATE [Concomitant]
     Active Substance: ZOLPIDEM TARTRATE
     Indication: Product used for unknown indication
     Dosage: 10 MILLIGRAM PER MILLILITRE
     Route: 048
  5. DROPAXIN [Concomitant]
     Indication: Product used for unknown indication
     Dosage: THE PATIENT TAKES DROPAXIN GTT, XX GTT/DAY
     Route: 048
  6. LEVETIRACETAM [Concomitant]
     Active Substance: LEVETIRACETAM
     Indication: Product used for unknown indication
     Dosage: 500 MILLIGRAM THE PATIENT TAKES LEVETIRACETAM 500 MG, 2 TIMES A DAY
     Route: 048
  7. LASIX [Concomitant]
     Active Substance: FUROSEMIDE
     Indication: Product used for unknown indication
     Dosage: THE PATIENT TAKES LASIX 25 MG, 1/2 TABLETS/DAY IN THE MORNING
     Route: 048
  8. TAMSULOSIN HYDROCHLORIDE [Concomitant]
     Active Substance: TAMSULOSIN HYDROCHLORIDE
     Indication: Product used for unknown indication
     Dosage: THE PATIENT TAKES OMNIC 1 TABLET/DAY
     Route: 048

REACTIONS (4)
  - Peripheral swelling [Unknown]
  - Lymphopenia [Recovered/Resolved]
  - Thrombocytopenia [Recovered/Resolved]
  - Cough [Recovered/Resolved]

NARRATIVE: CASE EVENT DATE: 20230927
